FAERS Safety Report 6718913-4 (Version None)
Quarter: 2010Q2

REPORT INFORMATION
  Report Type: 
  Country: None (occurrence: None)
  Receive Date: 20100511
  Receipt Date: 20100429
  Transmission Date: 20101027
  Serious: No
  Sender: FDA-Public Use
  Company Number: 2009BI001191

PATIENT
  Sex: Female

DRUGS (1)
  1. TYSABRI [Suspect]
     Indication: MULTIPLE SCLEROSIS
     Route: 042
     Dates: start: 20080728

REACTIONS (9)
  - ABASIA [None]
  - DYSARTHRIA [None]
  - GAIT DISTURBANCE [None]
  - INFLUENZA [None]
  - MEMORY IMPAIRMENT [None]
  - MIGRAINE [None]
  - PAIN [None]
  - PAIN IN EXTREMITY [None]
  - URINARY INCONTINENCE [None]
